FAERS Safety Report 10126805 (Version 2)
Quarter: 2015Q1

REPORT INFORMATION
  Report Type: Other
  Country: US (occurrence: US)
  Receive Date: 20140427
  Receipt Date: 20150223
  Transmission Date: 20150720
  Serious: Yes (Hospitalization, Other)
  Sender: FDA-Public Use
  Company Number: US-GSKPPD-2014GSK029737

PATIENT
  Age: 60 Year
  Sex: Male

DRUGS (4)
  1. ASPIRIN. [Concomitant]
     Active Substance: ASPIRIN
  2. QUINAPRIL [Concomitant]
     Active Substance: QUINAPRIL\QUINAPRIL HYDROCHLORIDE
  3. AVANDIA [Suspect]
     Active Substance: ROSIGLITAZONE MALEATE
     Indication: DIABETES MELLITUS
     Dosage: DATES OF AVANDIA USE COULD NOT BE CONFIRMED IN RECORDS REVIEWED.
     Route: 048
  4. METOPROLOL [Concomitant]
     Active Substance: METOPROLOL

REACTIONS (3)
  - Myocardial ischaemia [Unknown]
  - Post procedural myocardial infarction [Recovered/Resolved]
  - Coronary artery stenosis [Recovered/Resolved]

NARRATIVE: CASE EVENT DATE: 200510
